FAERS Safety Report 15320722 (Version 1)
Quarter: 2018Q3

REPORT INFORMATION
  Report Type: Spontaneous
  Country: TW (occurrence: TW)
  Receive Date: 20180827
  Receipt Date: 20180827
  Transmission Date: 20181010
  Serious: Yes (Hospitalization)
  Sender: FDA-Public Use
  Company Number: TW-009507513-1808TWN008844

PATIENT
  Sex: Female

DRUGS (4)
  1. KEYTRUDA [Suspect]
     Active Substance: PEMBROLIZUMAB
     Indication: NEOPLASM MALIGNANT
     Dosage: UNK
     Route: 042
  2. CARBOPLATIN. [Concomitant]
     Active Substance: CARBOPLATIN
     Dosage: (GFR: (96+25)*4) FOR SIX CYCLES
  3. AVASTIN [Concomitant]
     Active Substance: BEVACIZUMAB
     Dosage: (BW * 15MG) FOR SIX CYCLES
  4. DOCETAXEL. [Concomitant]
     Active Substance: DOCETAXEL
     Dosage: (BSA * 75MG/M2) FOR SIX CYCLES

REACTIONS (3)
  - Rash [Recovered/Resolved]
  - Aspartate aminotransferase increased [Recovered/Resolved]
  - Alanine aminotransferase increased [Recovered/Resolved]

NARRATIVE: CASE EVENT DATE: 20170930
